FAERS Safety Report 5274533-2 (Version None)
Quarter: 2007Q1

REPORT INFORMATION
  Report Type: 
  Country: None (occurrence: None)
  Receive Date: 20070320
  Receipt Date: 20070309
  Transmission Date: 20070707
  Serious: Yes (Hospitalization)
  Sender: FDA-Public Use
  Company Number: GXKR2007GB02453

PATIENT
  Age: 86 Year
  Sex: Male

DRUGS (8)
  1. ASPIRIN [Suspect]
     Indication: ATRIAL FIBRILLATION
     Dosage: 150 MG, QD, ORAL
     Route: 048
     Dates: end: 20070209
  2. DIPYRIDAMOLE [Suspect]
     Indication: INFARCTION
     Dosage: 200 MG, BID, ORAL
     Route: 048
     Dates: end: 20070209
  3. CIMETIDINE [Concomitant]
  4. DIGOXIN [Concomitant]
  5. FUROSEMIDE [Concomitant]
  6. GLICLAZIDE (GLICLAZIDE) [Concomitant]
  7. LISINOPRIL [Concomitant]
  8. SIMVASTATIN [Concomitant]

REACTIONS (2)
  - DYSPNOEA [None]
  - HAEMOGLOBIN DECREASED [None]
